FAERS Safety Report 10176419 (Version 1)
Quarter: 2014Q2

REPORT INFORMATION
  Report Type: Spontaneous
  Country: CA (occurrence: CA)
  Receive Date: 20140516
  Receipt Date: 20140516
  Transmission Date: 20141212
  Serious: Yes (Hospitalization)
  Sender: FDA-Public Use
  Company Number: CA-TARO PHARMACEUTICALS U.S.A., INC-2014SUN01059

PATIENT
  Sex: Female

DRUGS (3)
  1. TARO-WARFARIN [Suspect]
     Indication: PRODUCT USED FOR UNKNOWN INDICATION
     Dosage: 1 MG, UNK
     Route: 065
  2. TARO-WARFARIN [Suspect]
     Dosage: 5 MG, UNK
     Route: 065
  3. TARO-WARFARIN [Suspect]
     Dosage: 10 MG, UNK
     Route: 065

REACTIONS (2)
  - International normalised ratio decreased [Unknown]
  - Product substitution issue [Unknown]
